FAERS Safety Report 17303671 (Version 6)
Quarter: 2020Q3

REPORT INFORMATION
  Report Type: Spontaneous
  Country: US (occurrence: US)
  Receive Date: 20200122
  Receipt Date: 20200702
  Transmission Date: 20201102
  Serious: Yes (Hospitalization)
  Sender: FDA-Public Use
  Company Number: US-ACTELION-A-US2020-200678

PATIENT
  Age: 38 Year
  Sex: Female
  Weight: 113.83 kg

DRUGS (18)
  1. HYDROXYZINE [Concomitant]
     Active Substance: HYDROXYZINE HYDROCHLORIDE
     Indication: PRURITUS
     Dosage: 25 MG Q8H
  2. PANTOPRAZOLE [Concomitant]
     Active Substance: PANTOPRAZOLE
     Indication: GASTROOESOPHAGEAL REFLUX DISEASE
     Dosage: 40 MG, QD
  3. METOPROLOL. [Concomitant]
     Active Substance: METOPROLOL
     Dosage: 25 MG, QD
  4. METOLAZONE. [Concomitant]
     Active Substance: METOLAZONE
     Indication: GASTROOESOPHAGEAL REFLUX DISEASE
     Dosage: 5 MG, QD
  5. POTASSIUM [Concomitant]
     Active Substance: POTASSIUM
     Dosage: 80 MCG, QD
  6. TUMS [Concomitant]
     Active Substance: CALCIUM CARBONATE
     Dosage: UNK, PRN
  7. TRACLEER [Suspect]
     Active Substance: BOSENTAN
     Indication: PULMONARY ARTERIAL HYPERTENSION
     Dosage: 125 MG, BID
     Route: 048
     Dates: start: 2013
  8. OXYGEN. [Concomitant]
     Active Substance: OXYGEN
     Dosage: 4 L DURING HOURS OF SLEEP
     Route: 045
  9. VELETRI [Suspect]
     Active Substance: EPOPROSTENOL
     Indication: PULMONARY ARTERIAL HYPERTENSION
     Dosage: 21 NG/KG, PER MIN
     Route: 042
  10. WARFARIN [Concomitant]
     Active Substance: WARFARIN
  11. MAGNESIUM [Concomitant]
     Active Substance: MAGNESIUM
     Dosage: 400 MG, QD
  12. TORSEMIDE. [Concomitant]
     Active Substance: TORSEMIDE
     Dosage: 40 MG, BID
  13. OXYGEN. [Concomitant]
     Active Substance: OXYGEN
     Dosage: 4 L CONTINUOUS
     Route: 045
  14. REVATIO [Suspect]
     Active Substance: SILDENAFIL CITRATE
     Indication: PULMONARY ARTERIAL HYPERTENSION
     Dosage: UNK
     Route: 065
     Dates: end: 202001
  15. ELIQUIS [Suspect]
     Active Substance: APIXABAN
     Indication: PRODUCT USED FOR UNKNOWN INDICATION
     Dosage: UNK
     Route: 065
     Dates: start: 202002, end: 20200409
  16. COUMADIN [Concomitant]
     Active Substance: WARFARIN SODIUM
  17. GABAPENTIN. [Concomitant]
     Active Substance: GABAPENTIN
     Indication: NEURALGIA
     Dosage: 300 MG, BID
  18. SPIRONOLACTONE. [Concomitant]
     Active Substance: SPIRONOLACTONE
     Dosage: QD

REACTIONS (25)
  - Drug ineffective [Recovered/Resolved]
  - Rash [Unknown]
  - Gastrointestinal haemorrhage [Unknown]
  - Bronchitis [Unknown]
  - Drug hypersensitivity [Unknown]
  - Nausea [Recovered/Resolved]
  - Blood iron decreased [Unknown]
  - Chest pain [Recovered/Resolved]
  - Oxygen saturation decreased [Recovered/Resolved]
  - Illness [Recovered/Resolved]
  - Fluid retention [Not Recovered/Not Resolved]
  - Anaemia [Recovered/Resolved]
  - Haematochezia [Recovered/Resolved]
  - Gastrointestinal pain [Not Recovered/Not Resolved]
  - Incorrect dose administered [Recovered/Resolved]
  - Infectious mononucleosis [Recovered/Resolved]
  - Cardiac failure [Not Recovered/Not Resolved]
  - Faeces discoloured [Unknown]
  - Transfusion [Unknown]
  - Fungal infection [Recovered/Resolved]
  - Coronavirus infection [Recovered/Resolved]
  - Gastritis [Not Recovered/Not Resolved]
  - Sinusitis [Unknown]
  - Upper respiratory tract infection [Recovered/Resolved]
  - Hypertension [Unknown]

NARRATIVE: CASE EVENT DATE: 201911
